FAERS Safety Report 15788829 (Version 1)
Quarter: 2019Q1

REPORT INFORMATION
  Report Type: Spontaneous
  Country: DE (occurrence: DE)
  Receive Date: 20190104
  Receipt Date: 20190104
  Transmission Date: 20190417
  Serious: Yes (Other)
  Sender: FDA-Public Use
  Company Number: DE-TEVA-2018-DE-993791

PATIENT
  Sex: Female

DRUGS (1)
  1. VINCRISTINSULFAT-TEVA 1 MG/ML INJEKTIONSLOESUNG [Suspect]
     Active Substance: VINCRISTINE SULFATE
     Route: 065
     Dates: start: 20181227, end: 20181227

REACTIONS (2)
  - Pleural effusion [Unknown]
  - Injection site extravasation [Unknown]

NARRATIVE: CASE EVENT DATE: 20181227
